FAERS Safety Report 7934713-1 (Version None)
Quarter: 2011Q4

REPORT INFORMATION
  Report Type: 
  Country: None (occurrence: None)
  Receive Date: 20111118
  Receipt Date: 20111108
  Transmission Date: 20120403
  Serious: Yes (Hospitalization)
  Sender: FDA-Public Use
  Company Number: 126251

PATIENT
  Age: 38 Year
  Sex: Male

DRUGS (1)
  1. CERUBIDINE [Suspect]
     Indication: ACUTE LEUKAEMIA
     Dosage: 114MG 1X/DAY IV
     Route: 042
     Dates: start: 20110405, end: 20110407

REACTIONS (7)
  - SEPTIC SHOCK [None]
  - PSEUDOMONAS INFECTION [None]
  - BONE MARROW FAILURE [None]
  - STENOTROPHOMONAS TEST POSITIVE [None]
  - CULTURE STOOL POSITIVE [None]
  - STREPTOCOCCUS TEST POSITIVE [None]
  - ACUTE RESPIRATORY DISTRESS SYNDROME [None]
